FAERS Safety Report 12508630 (Version 5)
Quarter: 2018Q1

REPORT INFORMATION
  Report Type: Report from Study
  Country: IL (occurrence: IL)
  Receive Date: 20160629
  Receipt Date: 20180315
  Transmission Date: 20180508
  Serious: Yes (Hospitalization)
  Sender: FDA-Public Use
  Company Number: IL-JNJFOC-20160524862

PATIENT
  Age: 84 Year
  Sex: Female

DRUGS (8)
  1. ACAMOL [Concomitant]
     Active Substance: ACETAMINOPHEN
     Route: 065
  2. CORTISONE [Concomitant]
     Active Substance: CORTISONE\HYDROCORTISONE
     Route: 065
  3. SIMPONI [Suspect]
     Active Substance: GOLIMUMAB
     Indication: RHEUMATOID ARTHRITIS
     Route: 058
     Dates: start: 20141231
  4. SIMPONI [Suspect]
     Active Substance: GOLIMUMAB
     Indication: RHEUMATOID ARTHRITIS
     Route: 058
  5. OPTALGIN [Concomitant]
     Active Substance: METAMIZOLE
     Route: 065
  6. NORMALOL [Concomitant]
     Active Substance: ATENOLOL
     Route: 065
  7. COLCHICIN [Concomitant]
     Active Substance: COLCHICINE
     Route: 065
  8. METHOTREXATE. [Concomitant]
     Active Substance: METHOTREXATE
     Route: 065

REACTIONS (9)
  - Inflammation [Recovered/Resolved]
  - Inflammation [Unknown]
  - Musculoskeletal pain [Recovering/Resolving]
  - Pneumonia [Recovering/Resolving]
  - Arthritis [Unknown]
  - Musculoskeletal pain [Unknown]
  - Pain in extremity [Not Recovered/Not Resolved]
  - Drug ineffective [Unknown]
  - Arthralgia [Unknown]

NARRATIVE: CASE EVENT DATE: 201605
